FAERS Safety Report 20506242 (Version 1)
Quarter: 2022Q1

REPORT INFORMATION
  Report Type: Spontaneous
  Country: RO (occurrence: RO)
  Receive Date: 20220223
  Receipt Date: 20220223
  Transmission Date: 20220423
  Serious: Yes (Hospitalization, Other)
  Sender: FDA-Public Use
  Company Number: RO-PFIZER INC-202200242656

PATIENT
  Age: 50 Year
  Sex: Male

DRUGS (2)
  1. METHYLPREDNISOLONE SODIUM SUCCINATE [Suspect]
     Active Substance: METHYLPREDNISOLONE SODIUM SUCCINATE
     Dosage: 1 G, DAILY; PULSE THERAPY
  2. PREDNISONE [Suspect]
     Active Substance: PREDNISONE
     Dosage: 0.5 MG/BODY WEIGHT, DAILY

REACTIONS (2)
  - Renal impairment [Not Recovered/Not Resolved]
  - Pericarditis [Unknown]
